FAERS Safety Report 22540300 (Version 1)
Quarter: 2023Q2

REPORT INFORMATION
  Report Type: Spontaneous
  Country: CA (occurrence: CA)
  Receive Date: 20230609
  Receipt Date: 20230609
  Transmission Date: 20230722
  Serious: No
  Sender: FDA-Public Use
  Company Number: CA-TOLMAR, INC.-23CA040875

PATIENT
  Age: 32 Year
  Sex: Female

DRUGS (1)
  1. ELIGARD [Suspect]
     Active Substance: LEUPROLIDE ACETATE
     Indication: Product used for unknown indication
     Dosage: 45 MILLIGRAM
     Dates: start: 20230509

REACTIONS (3)
  - Puncture site haemorrhage [Unknown]
  - Occupational exposure to product [Unknown]
  - Injury associated with device [Unknown]

NARRATIVE: CASE EVENT DATE: 20230509
